FAERS Safety Report 13608576 (Version 2)
Quarter: 2017Q3

REPORT INFORMATION
  Report Type: Spontaneous
  Country: US (occurrence: US)
  Receive Date: 20170602
  Receipt Date: 20170713
  Transmission Date: 20171127
  Serious: Yes (Other)
  Sender: FDA-Public Use
  Company Number: US-PFIZER INC-2017243784

PATIENT
  Age: 76 Year
  Sex: Male
  Weight: 87.9 kg

DRUGS (2)
  1. VIAGRA [Suspect]
     Active Substance: SILDENAFIL CITRATE
     Indication: ERECTILE DYSFUNCTION
     Dosage: 50 MG, AS NEEDED
     Route: 048
  2. VIAGRA [Suspect]
     Active Substance: SILDENAFIL CITRATE
     Dosage: 100 MG, UNK
     Dates: start: 20170315

REACTIONS (1)
  - Nephrolithiasis [Recovered/Resolved]

NARRATIVE: CASE EVENT DATE: 20170525
